FAERS Safety Report 17457557 (Version 4)
Quarter: 2020Q2

REPORT INFORMATION
  Report Type: Report from Study
  Country: US (occurrence: US)
  Receive Date: 20200225
  Receipt Date: 20200429
  Transmission Date: 20200713
  Serious: Yes (Other)
  Sender: FDA-Public Use
  Company Number: US-DSJP-DSU-2020-104018

PATIENT

DRUGS (2)
  1. PEXIDARTINIB [Suspect]
     Active Substance: PEXIDARTINIB
     Indication: NEOPLASM SKIN
     Dosage: 400 MG, BID
     Route: 048
     Dates: start: 20200102, end: 20200206
  2. PEXIDARTINIB [Suspect]
     Active Substance: PEXIDARTINIB
     Dosage: 200 MG QAM,400 MG QPM
     Route: 048
     Dates: start: 20200225, end: 20200305

REACTIONS (8)
  - Aspartate aminotransferase increased [Recovered/Resolved]
  - Gamma-glutamyltransferase increased [Not Recovered/Not Resolved]
  - Pain in extremity [Unknown]
  - Hair colour changes [Unknown]
  - Off label use [Unknown]
  - Alanine aminotransferase increased [Not Recovered/Not Resolved]
  - Blood glucose increased [Not Recovered/Not Resolved]
  - Blood disorder [Unknown]

NARRATIVE: CASE EVENT DATE: 2020
